FAERS Safety Report 18866117 (Version 1)
Quarter: 2021Q1

REPORT INFORMATION
  Report Type: Spontaneous
  Country: US (occurrence: US)
  Receive Date: 20210206
  Receipt Date: 20210206
  Transmission Date: 20210420
  Serious: Yes (Other)
  Sender: FDA-Public Use
  Company Number: None

PATIENT
  Age: 25 Year
  Sex: Female
  Weight: 68.04 kg

DRUGS (1)
  1. TCA (TRICHLOROACETIC ACID) PEEL [Suspect]
     Active Substance: TRICHLOROACETIC ACID

REACTIONS (1)
  - Chemical burn [None]

NARRATIVE: CASE EVENT DATE: 20200629
